FAERS Safety Report 24606208 (Version 1)
Quarter: 2024Q4

REPORT INFORMATION
  Report Type: Report from Study
  Country: CO (occurrence: CO)
  Receive Date: 20241112
  Receipt Date: 20241112
  Transmission Date: 20250115
  Serious: Yes (Hospitalization, Other)
  Sender: ABBVIE
  Company Number: CO-ABBVIE-5991727

PATIENT
  Age: 70 Year
  Sex: Male

DRUGS (4)
  1. VENCLEXTA [Suspect]
     Active Substance: VENETOCLAX
     Indication: Acute myeloid leukaemia
     Route: 048
     Dates: start: 20240724, end: 20240905
  2. AZACITIDINE [Concomitant]
     Active Substance: AZACITIDINE
     Indication: Acute myeloid leukaemia
     Dates: start: 20240717, end: 20240905
  3. LACTULOSE [Concomitant]
     Active Substance: LACTULOSE
     Indication: Constipation
  4. ACYCLOVIR [Concomitant]
     Active Substance: ACYCLOVIR
     Indication: Product used for unknown indication

REACTIONS (32)
  - Leukaemia [Unknown]
  - Pleural effusion [Unknown]
  - Cytopenia [Unknown]
  - C-reactive protein increased [Unknown]
  - Fibrin D dimer increased [Unknown]
  - Polyuria [Recovered/Resolved]
  - Dyspnoea [Unknown]
  - Cardiac failure [Recovered/Resolved]
  - Oedema peripheral [Unknown]
  - Granulocytes abnormal [Unknown]
  - Pyrexia [Recovered/Resolved]
  - Alveolar lung disease [Unknown]
  - Consciousness fluctuating [Unknown]
  - C-reactive protein increased [Unknown]
  - Blood lactic acid increased [Unknown]
  - Fluid retention [Recovered/Resolved]
  - Polyuria [Recovered/Resolved]
  - Febrile neutropenia [Recovered/Resolved]
  - Phlebitis [Recovered/Resolved]
  - Blood pressure increased [Unknown]
  - Constipation [Unknown]
  - Cytopenia [Unknown]
  - Disorientation [Unknown]
  - Pulmonary oedema [Unknown]
  - Unevaluable event [Unknown]
  - Tachypnoea [Unknown]
  - Depression [Unknown]
  - Febrile neutropenia [Recovered/Resolved]
  - Delirium [Unknown]
  - Pneumonia [Unknown]
  - Asthenia [Recovered/Resolved]
  - Dyspnoea [Recovered/Resolved]

NARRATIVE: CASE EVENT DATE: 20240101
